FAERS Safety Report 6024945-4 (Version None)
Quarter: 2008Q4

REPORT INFORMATION
  Report Type: 
  Country: None (occurrence: None)
  Receive Date: 20081223
  Receipt Date: 20081204
  Transmission Date: 20090506
  Serious: Yes (Hospitalization)
  Sender: FDA-Public Use
  Company Number: 08-ADE-SU-0011-DOR

PATIENT
  Age: 18 Year
  Sex: Female

DRUGS (8)
  1. DORAL [Suspect]
     Dosage: PO
     Route: 048
  2. AMOXAPINE [Concomitant]
  3. ERISPAN [Concomitant]
  4. LUVOX [Concomitant]
  5. ROHYPNOL [Concomitant]
  6. SEROQUEL [Concomitant]
  7. DORAL [Concomitant]
  8. SOLANEX [Concomitant]

REACTIONS (3)
  - HEPATIC FUNCTION ABNORMAL [None]
  - MUCOUS MEMBRANE DISORDER [None]
  - STEVENS-JOHNSON SYNDROME [None]
